FAERS Safety Report 16216391 (Version 1)
Quarter: 2019Q2

REPORT INFORMATION
  Report Type: Spontaneous
  Country: CN (occurrence: CN)
  Receive Date: 20190419
  Receipt Date: 20190419
  Transmission Date: 20190711
  Serious: Yes (Hospitalization)
  Sender: FDA-Public Use
  Company Number: CN-BAXTER-2019BAX007637

PATIENT
  Age: 44 Year
  Sex: Male
  Weight: 71 kg

DRUGS (19)
  1. ENDOXAN [Suspect]
     Active Substance: CYCLOPHOSPHAMIDE
     Dosage: DOSE RE-INTRODUCED, 0.9% SODIUM CHLORIDE + CYCLOPHOSPHAMIDE. DOSAGE FORM: INJECTION
     Route: 042
  2. MABTHERA [Suspect]
     Active Substance: RITUXIMAB
     Dosage: DOSE RE-INTRODUCED, SODIUM CHLORIDE + RITUXIMAB
     Route: 041
  3. STERILE WATER [Suspect]
     Active Substance: WATER
     Indication: MEDICATION DILUTION
     Dosage: STERILE WATER FOR INJECTION 40 ML + EPIRUBICIN 110 MG.
     Route: 042
     Dates: start: 20190307, end: 20190307
  4. SODIUM CHLORIDE. [Suspect]
     Active Substance: SODIUM CHLORIDE
     Indication: MEDICATION DILUTION
     Dosage: 0.9% SODIUM CHLORIDE 100 ML + RITUXIMAB 100 MG
     Route: 041
     Dates: start: 20190307, end: 20190307
  5. SODIUM CHLORIDE. [Suspect]
     Active Substance: SODIUM CHLORIDE
     Dosage: DOSE RE-INTRODUCED, 0.9% SODIUM CHLORIDE + RITUXIMAB.
     Route: 041
  6. PHARMORUBICIN RD [Suspect]
     Active Substance: EPIRUBICIN
     Indication: LYMPHOMA
     Dosage: STERILE WATER FOR INJECTION 40 ML + EPIRUBICIN 110 MG
     Route: 042
     Dates: start: 20190307, end: 20190307
  7. STERILE WATER [Suspect]
     Active Substance: WATER
     Dosage: DOSE RE-INTRODUCED, STERILE WATER FOR INJECTION + EPIRUBICIN.
     Route: 042
  8. VINDESINE SULFATE [Suspect]
     Active Substance: VINDESINE SULFATE
     Indication: LYMPHOMA
     Dosage: 0.9% SODIUM CHLORIDE 40 ML + VINDESINE 3 MG
     Route: 042
     Dates: start: 20190307, end: 20190307
  9. MABTHERA [Suspect]
     Active Substance: RITUXIMAB
     Dosage: 0.9% SODIUM CHLORIDE 500 ML + RITUXIMAB 500 MG
     Route: 041
     Dates: start: 20190307, end: 20190307
  10. VINDESINE SULFATE [Suspect]
     Active Substance: VINDESINE SULFATE
     Dosage: DOSE RE-INTRODUCED, SODIUM CHLORIDE + VINDESINE.
     Route: 042
  11. 0.9% SODIUM CHLORIDE INJECTION [Suspect]
     Active Substance: SODIUM CHLORIDE
     Indication: MEDICATION DILUTION
     Dosage: DOSAGE FORM: INJECTION, 0.9 % SODIUM CHLORIDE 40 ML + CYCLOPHOSPHAMIDE 1.2 G
     Route: 042
     Dates: start: 20190307, end: 20190307
  12. MABTHERA [Suspect]
     Active Substance: RITUXIMAB
     Indication: LYMPHOMA
     Dosage: 0.9% SODIUM CHLORIDE 100 ML + RITUXIMAB 100 MG
     Route: 041
     Dates: start: 20190307, end: 20190307
  13. ENDOXAN [Suspect]
     Active Substance: CYCLOPHOSPHAMIDE
     Indication: LYMPHOMA
     Dosage: 0.9% SODIUM CHLORIDE 40 ML + CYCLOPHOSPHAMIDE 1.2 G. DOSAGE FORM: INJECTION
     Route: 042
     Dates: start: 20190307, end: 20190307
  14. PHARMORUBICIN RD [Suspect]
     Active Substance: EPIRUBICIN
     Dosage: DOSE INTRODUCED, STERILE WATER FOR INJECTION + EPIRUBICIN.
     Route: 042
  15. SODIUM CHLORIDE. [Suspect]
     Active Substance: SODIUM CHLORIDE
     Indication: MEDICATION DILUTION
     Dosage: 0.9% SODIUM CHLORIDE 500 ML + RITUXIMAB 500MG
     Route: 041
     Dates: start: 20190307, end: 20190307
  16. 0.9% SODIUM CHLORIDE INJECTION [Suspect]
     Active Substance: SODIUM CHLORIDE
     Dosage: DOSE INTRODUCED: 0.9 % SODIUM CHLORIDE + CYCLOPHOSPHAMIDE. DOSAGE FORM: INJECTION
     Route: 042
  17. SODIUM CHLORIDE. [Suspect]
     Active Substance: SODIUM CHLORIDE
     Indication: MEDICATION DILUTION
     Dosage: 0.9 % SODIUM CHLORIDE 40 ML + VINDESINE 3 MG
     Route: 042
     Dates: start: 20190307, end: 20190307
  18. SODIUM CHLORIDE. [Suspect]
     Active Substance: SODIUM CHLORIDE
     Dosage: DOSE RE-INTRODUCED, 0.9% SODIUM CHLORIDE + VINDESINE.
     Route: 042
  19. SODIUM CHLORIDE. [Suspect]
     Active Substance: SODIUM CHLORIDE
     Dosage: DOSE RE-INTRODUCED, 0.9% SODIUM CHLORIDE + RITUXIMAB.
     Route: 041

REACTIONS (2)
  - Leukopenia [Recovering/Resolving]
  - Neutropenia [Recovering/Resolving]

NARRATIVE: CASE EVENT DATE: 20190315
